FAERS Safety Report 23647254 (Version 1)
Quarter: 2024Q1

REPORT INFORMATION
  Report Type: Spontaneous
  Country: US (occurrence: None)
  Receive Date: 20240318
  Receipt Date: 20240318
  Transmission Date: 20240410
  Serious: Yes (Life-Threatening, Other)
  Sender: FDA-Public Use
  Company Number: None

PATIENT
  Age: 33 Year
  Sex: Male
  Weight: 104.85 kg

DRUGS (1)
  1. HERBALS\MITRAGYNINE [Suspect]
     Active Substance: HERBALS\MITRAGYNINE
     Indication: Asthenia
     Route: 048

REACTIONS (6)
  - Pyrexia [None]
  - Chills [None]
  - Urticaria [None]
  - Pruritus [None]
  - Skin exfoliation [None]
  - Flushing [None]

NARRATIVE: CASE EVENT DATE: 20240315
